FAERS Safety Report 6072011-4 (Version None)
Quarter: 2009Q1

REPORT INFORMATION
  Report Type: 
  Country: None (occurrence: None)
  Receive Date: 20090205
  Receipt Date: 20090205
  Transmission Date: 20090719
  Serious: Yes (Hospitalization)
  Sender: FDA-Public Use
  Company Number: None

PATIENT
  Age: 62 Year
  Sex: Female
  Weight: 58.514 kg

DRUGS (1)
  1. ACTONEL [Suspect]

REACTIONS (3)
  - IMPAIRED WORK ABILITY [None]
  - LOOSE TOOTH [None]
  - PAIN [None]
